FAERS Safety Report 14839489 (Version 1)
Quarter: 2018Q2

REPORT INFORMATION
  Report Type: Spontaneous
  Country: GB (occurrence: GB)
  Receive Date: 20180502
  Receipt Date: 20180502
  Transmission Date: 20180711
  Serious: Yes (Other)
  Sender: FDA-Public Use
  Company Number: GB-TEVA-2018-GB-888106

PATIENT
  Age: 53 Year
  Sex: Female
  Weight: 73 kg

DRUGS (2)
  1. LANSOPRAZOLE. [Suspect]
     Active Substance: LANSOPRAZOLE
     Route: 065
     Dates: start: 20170918
  2. ESTROGENS CONJUGATED [Concomitant]
     Active Substance: ESTROGENS, CONJUGATED
     Dosage: 1 DOSAGE FORMS DAILY;
     Route: 065
     Dates: start: 20161003, end: 20180202

REACTIONS (1)
  - Ventricular extrasystoles [Recovered/Resolved]

NARRATIVE: CASE EVENT DATE: 20180302
